FAERS Safety Report 6608302-5 (Version None)
Quarter: 2010Q1

REPORT INFORMATION
  Report Type: 
  Country: None (occurrence: None)
  Receive Date: 20100301
  Receipt Date: 20100219
  Transmission Date: 20100710
  Serious: Yes (Hospitalization)
  Sender: FDA-Public Use
  Company Number: US-ASTRAZENECA-2010SE07318

PATIENT
  Age: 42 Year
  Sex: Male
  Weight: 69.4 kg

DRUGS (8)
  1. NEXIUM [Suspect]
     Indication: CROHN'S DISEASE
     Route: 048
  2. REMICADE [Suspect]
     Indication: CROHN'S DISEASE
     Dosage: 5 MG/KG, 8 INFUSIONS PRIOR BASELINE
     Route: 042
     Dates: start: 20020829, end: 20020829
  3. REMICADE [Suspect]
     Dosage: 5 MG/KG, 8 INFUSIONS PRIOR BASELINE
     Route: 042
     Dates: start: 20030822, end: 20030822
  4. ANTISPASMODIC NOS [Suspect]
     Indication: CROHN'S DISEASE
  5. XIFAXAN [Suspect]
     Indication: CROHN'S DISEASE
  6. LOMOTIL [Suspect]
     Indication: CROHN'S DISEASE
  7. CHOLESTYRAMINE [Suspect]
     Indication: CROHN'S DISEASE
  8. DIGESTIVE ADVANTAGE [Suspect]
     Indication: CROHN'S DISEASE

REACTIONS (2)
  - BLOOD ELECTROLYTES ABNORMAL [None]
  - DEHYDRATION [None]
